FAERS Safety Report 24816175 (Version 1)
Quarter: 2025Q1

REPORT INFORMATION
  Report Type: Spontaneous
  Country: CN (occurrence: CN)
  Receive Date: 20250107
  Receipt Date: 20250107
  Transmission Date: 20250409
  Serious: Yes (Other)
  Sender: PFIZER
  Company Number: CN-PFIZER INC-PV202500000240

PATIENT
  Age: 21 Year
  Sex: Male
  Weight: 61 kg

DRUGS (1)
  1. CYTARABINE [Suspect]
     Active Substance: CYTARABINE
     Indication: Acute leukaemia
     Dosage: 0.09 G, 2X/DAY
     Route: 041
     Dates: start: 20241216, end: 20241222

REACTIONS (2)
  - Flushing [Recovering/Resolving]
  - Mucosal hyperaemia [Recovering/Resolving]

NARRATIVE: CASE EVENT DATE: 20241218
